FAERS Safety Report 6448614-1 (Version None)
Quarter: 2009Q4

REPORT INFORMATION
  Report Type: 
  Country: None (occurrence: None)
  Receive Date: 20091120
  Receipt Date: 20091110
  Transmission Date: 20100525
  Serious: Yes (Hospitalization, Other)
  Sender: FDA-Public Use
  Company Number: CZ-SANOFI-AVENTIS-200914489EU

PATIENT
  Age: 26 Year
  Sex: Male

DRUGS (13)
  1. ENOXAPARIN SODIUM [Suspect]
     Indication: DEEP VEIN THROMBOSIS
     Route: 058
     Dates: start: 20090714, end: 20090721
  2. WARFARIN SODIUM [Suspect]
     Indication: DEEP VEIN THROMBOSIS
     Dosage: DOSE AS USED: UNK
     Route: 048
     Dates: start: 20090714, end: 20090722
  3. WARFARIN SODIUM [Suspect]
     Dosage: DOSE AS USED: UNK
     Route: 048
     Dates: start: 20090819
  4. COXTRAL [Concomitant]
     Route: 048
     Dates: start: 20090713, end: 20090713
  5. GLYVENOL [Concomitant]
     Route: 048
     Dates: start: 20090713, end: 20090722
  6. FLAVOBION [Concomitant]
     Route: 048
     Dates: start: 20090713, end: 20090720
  7. NOVALGIN /SWE/ [Concomitant]
     Indication: PAIN
     Route: 048
     Dates: start: 20090713, end: 20090720
  8. CEFUROXIME [Concomitant]
     Route: 048
     Dates: start: 20090713, end: 20090720
  9. PARALEN [Concomitant]
     Route: 048
     Dates: start: 20090713, end: 20090714
  10. VITAMINS, OTHER COMBINATIONS [Concomitant]
     Route: 048
     Dates: start: 20090819, end: 20090906
  11. VITAMINS, OTHER COMBINATIONS [Concomitant]
     Indication: PROPHYLAXIS
     Route: 048
     Dates: start: 20090819, end: 20090906
  12. VITAMINS, OTHER COMBINATIONS [Concomitant]
     Route: 048
     Dates: start: 20090907
  13. VITAMINS, OTHER COMBINATIONS [Concomitant]
     Route: 048
     Dates: start: 20090907

REACTIONS (1)
  - ALANINE AMINOTRANSFERASE INCREASED [None]
